FAERS Safety Report 9157861 (Version 1)
Quarter: 2013Q1

REPORT INFORMATION
  Report Type: Report from Study
  Country: US (occurrence: US)
  Receive Date: 20130312
  Receipt Date: 20130312
  Transmission Date: 20140127
  Serious: No
  Sender: FDA-Public Use
  Company Number: US-VERTEX PHARMACEUTICALS INC.-2013-003349

PATIENT
  Age: 47 Year
  Sex: Male
  Weight: 112 kg

DRUGS (9)
  1. VX-950 (TELAPREVIR) [Suspect]
     Indication: HEPATITIS C
     Dosage: 750 MG, TID
     Route: 048
  2. PEGASYS [Suspect]
     Indication: HEPATITIS C
     Dosage: 180 MCG/M
  3. RIBAPAK [Suspect]
     Indication: HEPATITIS C
     Dosage: 1000 MG, QD
  4. PROZAC [Concomitant]
     Dosage: 20 MG, UNK
  5. COSOPT [Concomitant]
     Dosage: 2-0.5 PERCENT
     Route: 047
  6. XANAX [Concomitant]
     Dosage: 0.25 MG, UNK
  7. MULTIVITAMIN [Concomitant]
  8. ALLEGRA [Concomitant]
     Dosage: 180 MG, UNK
  9. IBUPROFEN [Concomitant]
     Dosage: 200 MG, UNK

REACTIONS (2)
  - Influenza like illness [Unknown]
  - Anorectal discomfort [Recovered/Resolved]
